FAERS Safety Report 15852384 (Version 3)
Quarter: 2025Q3

REPORT INFORMATION
  Report Type: Spontaneous
  Country: EU (occurrence: EU)
  Receive Date: 20190122
  Receipt Date: 20250815
  Transmission Date: 20251021
  Serious: Yes (Hospitalization, Other)
  Sender: AUROBINDO
  Company Number: EU-AUROBINDO-AUR-APL-2019-002480

PATIENT
  Age: 54 Year
  Sex: Female

DRUGS (1)
  1. AMOXICILLIN\CLAVULANIC ACID [Suspect]
     Active Substance: AMOXICILLIN\CLAVULANIC ACID
     Indication: Pneumonia
     Route: 065

REACTIONS (6)
  - Purpura fulminans [Unknown]
  - Hepatic function abnormal [Unknown]
  - Renal impairment [Unknown]
  - Nervous system disorder [Unknown]
  - Septic shock [Unknown]
  - Disseminated intravascular coagulation [Unknown]
